FAERS Safety Report 18841264 (Version 2)
Quarter: 2021Q1

REPORT INFORMATION
  Report Type: Spontaneous
  Country: US (occurrence: US)
  Receive Date: 20210203
  Receipt Date: 20210323
  Transmission Date: 20210419
  Serious: Yes (Hospitalization, Other)
  Sender: FDA-Public Use
  Company Number: US-SA-2021SA031530

PATIENT
  Age: 57 Year
  Sex: Male

DRUGS (2)
  1. DUPIXENT [Suspect]
     Active Substance: DUPILUMAB
     Indication: DERMATITIS ATOPIC
     Dosage: 600 MG, 1X
     Route: 058
     Dates: start: 201906, end: 201906
  2. DUPIXENT [Suspect]
     Active Substance: DUPILUMAB
     Indication: SEBORRHOEIC KERATOSIS
     Dosage: 300 MG, QOW
     Route: 058

REACTIONS (3)
  - Product use in unapproved indication [Unknown]
  - Tooth extraction [Unknown]
  - Pericardial effusion [Unknown]

NARRATIVE: CASE EVENT DATE: 201906
